FAERS Safety Report 19554219 (Version 1)
Quarter: 2021Q3

REPORT INFORMATION
  Report Type: Spontaneous
  Country: DE (occurrence: DE)
  Receive Date: 20210715
  Receipt Date: 20210715
  Transmission Date: 20211014
  Serious: Yes (Death, Other)
  Sender: FDA-Public Use
  Company Number: DE-ACCORD-231589

PATIENT

DRUGS (7)
  1. BUSULFAN. [Suspect]
     Active Substance: BUSULFAN
     Indication: T-CELL PROLYMPHOCYTIC LEUKAEMIA
  2. CYCLOPHOSPHAMIDE/CYCLOPHOSPHAMIDE MONOHYDRATE [Suspect]
     Active Substance: CYCLOPHOSPHAMIDE
     Indication: T-CELL PROLYMPHOCYTIC LEUKAEMIA
     Dosage: UNK
  3. MYCOPHENOLIC ACID. [Suspect]
     Active Substance: MYCOPHENOLIC ACID
     Indication: PROPHYLAXIS AGAINST GRAFT VERSUS HOST DISEASE
     Dosage: UNK, QD
  4. FLUDARABINE/FLUDARABINE PHOSPHATE [Suspect]
     Active Substance: FLUDARABINE PHOSPHATE
     Indication: T-CELL PROLYMPHOCYTIC LEUKAEMIA
  5. CICLOSPORIN [Suspect]
     Active Substance: CYCLOSPORINE
     Indication: PROPHYLAXIS AGAINST GRAFT VERSUS HOST DISEASE
     Dosage: 200 NG/ML/DAY FOR 100 DAYS
  6. ALEMTUZUMAB [Suspect]
     Active Substance: ALEMTUZUMAB
     Indication: IMMUNOSUPPRESSANT DRUG THERAPY
     Dosage: 30 MG, QW (30 MG/48 H WEEKLY)
     Route: 042
  7. ALEMTUZUMAB [Suspect]
     Active Substance: ALEMTUZUMAB
     Indication: IMMUNOSUPPRESSANT DRUG THERAPY
     Dosage: 3, 10, 30 MG OF ANTI?CD52 ANTIBODY IV/48 HOURS IN FIRST WEEK
     Route: 042

REACTIONS (2)
  - Infection [Fatal]
  - Bacterial sepsis [Fatal]
